FAERS Safety Report 8385448 (Version 2)
Quarter: 2015Q1

REPORT INFORMATION
  Report Type: Report from Study
  Country: US (occurrence: US)
  Receive Date: 20120202
  Receipt Date: 20150226
  Transmission Date: 20150721
  Serious: Yes (Death)
  Sender: FDA-Public Use
  Company Number: US-ROCHE-1035802

PATIENT
  Age: 47 Year
  Sex: Female
  Weight: 93.6 kg

DRUGS (9)
  1. FAMOTIDINE. [Concomitant]
     Active Substance: FAMOTIDINE
     Route: 040
  2. AVASTIN [Suspect]
     Active Substance: BEVACIZUMAB
     Indication: MALIGNANT MELANOMA
     Route: 042
     Dates: start: 20090114
  3. CARBOPLATIN. [Concomitant]
     Active Substance: CARBOPLATIN
     Route: 042
  4. AVASTIN [Suspect]
     Active Substance: BEVACIZUMAB
     Route: 042
  5. DEXAMETHASONE. [Concomitant]
     Active Substance: DEXAMETHASONE
     Route: 040
  6. LOVENOX [Concomitant]
     Active Substance: ENOXAPARIN SODIUM
     Indication: DEEP VEIN THROMBOSIS
     Route: 058
  7. DIPHENHYDRAMINE [Concomitant]
     Active Substance: DIPHENHYDRAMINE
     Route: 040
  8. ALOXI [Concomitant]
     Active Substance: PALONOSETRON HYDROCHLORIDE
     Route: 040
  9. TAXOL [Concomitant]
     Active Substance: PACLITAXEL
     Route: 042

REACTIONS (10)
  - Fatigue [Unknown]
  - Haematocrit decreased [Unknown]
  - Atelectasis [Unknown]
  - Wound infection [Unknown]
  - Abdominal pain [Unknown]
  - Vomiting [Unknown]
  - Ascites [Unknown]
  - Metastases to liver [Unknown]
  - Death [Fatal]
  - Abscess [Unknown]

NARRATIVE: CASE EVENT DATE: 20090211
